FAERS Safety Report 22185851 (Version 9)
Quarter: 2024Q1

REPORT INFORMATION
  Report Type: Spontaneous
  Country: US (occurrence: US)
  Receive Date: 20230407
  Receipt Date: 20240215
  Transmission Date: 20240410
  Serious: No
  Sender: FDA-Public Use
  Company Number: US-GLAXOSMITHKLINE-US2023AMR049522

PATIENT
  Sex: Female

DRUGS (2)
  1. ZEJULA [Suspect]
     Active Substance: NIRAPARIB
     Indication: Ovarian cancer
     Dosage: 200 MG, QD
     Dates: start: 202303
  2. ZEJULA [Suspect]
     Active Substance: NIRAPARIB
     Indication: Ovarian cancer
     Dosage: 200 MG, QD

REACTIONS (19)
  - Bone pain [Unknown]
  - Anaemia [Unknown]
  - Dyspepsia [Unknown]
  - Rhinorrhoea [Recovering/Resolving]
  - Skin disorder [Unknown]
  - Blood pressure diastolic increased [Recovering/Resolving]
  - Nasal discomfort [Unknown]
  - Epistaxis [Not Recovered/Not Resolved]
  - Abdominal pain upper [Recovered/Resolved]
  - Mucous stools [Recovered/Resolved]
  - Malaise [Unknown]
  - Vomiting [Unknown]
  - Viral infection [Recovering/Resolving]
  - Nasopharyngitis [Recovering/Resolving]
  - Cough [Unknown]
  - Upper-airway cough syndrome [Unknown]
  - Nasal dryness [Unknown]
  - Blood pressure increased [Recovering/Resolving]
  - Product dose omission issue [Unknown]
